FAERS Safety Report 6774795-6 (Version None)
Quarter: 2010Q2

REPORT INFORMATION
  Report Type: 
  Country: None (occurrence: None)
  Receive Date: 20100616
  Receipt Date: 20100616
  Transmission Date: 20101027
  Serious: No
  Sender: FDA-Public Use
  Company Number: None

PATIENT

DRUGS (2)
  1. VOLUMEN 0.1% E-Z-EM [Suspect]
  2. VOLUVEN 6% HOSPIRA [Suspect]

REACTIONS (1)
  - DRUG NAME CONFUSION [None]
